FAERS Safety Report 9216230 (Version 1)
Quarter: 2013Q2

REPORT INFORMATION
  Report Type: Spontaneous
  Country: DK (occurrence: None)
  Receive Date: 20130404
  Receipt Date: 20130404
  Transmission Date: 20140414
  Serious: Yes (Hospitalization)
  Sender: FDA-Public Use
  Company Number: AUR-APL-2013-02613

PATIENT
  Age: 25 Year
  Sex: Female

DRUGS (3)
  1. LAMOTRIGINE [Suspect]
     Indication: DEPRESSION
     Dates: start: 201110
  2. MIRTAZAPIN (MIRTAZAPINE) [Concomitant]
  3. VENLAFAXINE (VENLAFAXINE) [Concomitant]

REACTIONS (6)
  - Muscle spasms [None]
  - Treatment noncompliance [None]
  - Inappropriate schedule of drug administration [None]
  - Incorrect dose administered [None]
  - Tic [None]
  - Myoclonus [None]
